FAERS Safety Report 15285951 (Version 2)
Quarter: 2018Q3

REPORT INFORMATION
  Report Type: Report from Study
  Country: US (occurrence: US)
  Receive Date: 20180816
  Receipt Date: 20180924
  Transmission Date: 20181010
  Serious: Yes (Life-Threatening, Hospitalization, Other)
  Sender: FDA-Public Use
  Company Number: US-MYLANLABS-2018M1061320

PATIENT
  Age: 50 Year
  Sex: Female
  Weight: 79 kg

DRUGS (6)
  1. PETHIDINE [Concomitant]
     Active Substance: MEPERIDINE
     Indication: PRODUCT USED FOR UNKNOWN INDICATION
     Dosage: UNK
  2. PREDNISONE. [Suspect]
     Active Substance: PREDNISONE
     Indication: PRODUCT USED FOR UNKNOWN INDICATION
     Dosage: UNK
     Dates: start: 20180618
  3. VALACYCLOVIR                       /01269701/ [Concomitant]
     Active Substance: VALACYCLOVIR HYDROCHLORIDE
     Indication: PRODUCT USED FOR UNKNOWN INDICATION
     Dosage: UNK
  4. AZITHROMYCIN ANHYDROUS. [Concomitant]
     Active Substance: AZITHROMYCIN ANHYDROUS
     Indication: PRODUCT USED FOR UNKNOWN INDICATION
     Dosage: UNK
  5. PREDNISONE. [Suspect]
     Active Substance: PREDNISONE
     Indication: PRODUCT USED FOR UNKNOWN INDICATION
     Dosage: UNK
     Dates: start: 20180618
  6. MYCOPHENOLATE MOFETIL. [Suspect]
     Active Substance: MYCOPHENOLATE MOFETIL
     Indication: CHRONIC GRAFT VERSUS HOST DISEASE
     Dosage: 1000 MG, BID
     Route: 042
     Dates: start: 20180601

REACTIONS (7)
  - Oesophagitis [Recovered/Resolved with Sequelae]
  - Bronchopulmonary aspergillosis [Unknown]
  - Oxygen consumption increased [Unknown]
  - Pneumonia [Recovered/Resolved with Sequelae]
  - Pneumonia bacterial [Recovering/Resolving]
  - Escherichia bacteraemia [Recovered/Resolved with Sequelae]
  - Mental status changes [Unknown]

NARRATIVE: CASE EVENT DATE: 20180618
